FAERS Safety Report 9038759 (Version 1)
Quarter: 2013Q1

REPORT INFORMATION
  Report Type: Report from Study
  Country: US (occurrence: US)
  Receive Date: 20130129
  Receipt Date: 20130129
  Transmission Date: 20140127
  Serious: No
  Sender: FDA-Public Use
  Company Number: US-ABBOTT-12P-163-0935346-00

PATIENT
  Age: 59 Year
  Sex: Female

DRUGS (12)
  1. HUMIRA 40 MG/0.8 ML PEN [Suspect]
     Indication: RHEUMATOID ARTHRITIS
     Dates: start: 201201
  2. METHOTREXATE [Concomitant]
     Indication: RHEUMATOID ARTHRITIS
     Dosage: 8 TABS WEEKLY
  3. ALLEGRA [Concomitant]
     Indication: HYPERSENSITIVITY
     Dosage: OTC, 1 TABLET DAILY
  4. FISH OIL [Concomitant]
     Indication: PRODUCT USED FOR UNKNOWN INDICATION
     Dosage: 1 TABLET DAILY
  5. BABY ASPIRIN [Concomitant]
     Indication: PRODUCT USED FOR UNKNOWN INDICATION
     Dosage: 1 TABLET DAILY
  6. FOLIC ACID [Concomitant]
     Indication: PRODUCT USED FOR UNKNOWN INDICATION
     Dosage: 1MG DAILY
  7. CALCIUM [Concomitant]
     Indication: PRODUCT USED FOR UNKNOWN INDICATION
     Dosage: 1200MG DAILY
  8. GLUCOSAMINE [Concomitant]
     Indication: PRODUCT USED FOR UNKNOWN INDICATION
     Dosage: 1 TABLET DAILY
  9. CINNAMON [Concomitant]
     Indication: BLOOD GLUCOSE ABNORMAL
     Dosage: 1 TABLET DAILY
  10. NASONEX [Concomitant]
     Indication: HYPERSENSITIVITY
  11. BENADRYL [Concomitant]
     Indication: HYPERSENSITIVITY
     Dosage: 1 TABLET AT BEDTIME
  12. IBUPROFEN [Concomitant]
     Indication: PAIN
     Dosage: 4-6 TABS DAILY AS NEEDED

REACTIONS (7)
  - Needle issue [Recovering/Resolving]
  - Injection site discolouration [Recovering/Resolving]
  - Injection site warmth [Recovering/Resolving]
  - Injection site swelling [Recovering/Resolving]
  - Injection site erythema [Recovering/Resolving]
  - Injection site pruritus [Recovering/Resolving]
  - Injection site pain [Recovering/Resolving]
